FAERS Safety Report 23797793 (Version 2)
Quarter: 2024Q2

REPORT INFORMATION
  Report Type: Report from Study
  Country: BR (occurrence: BR)
  Receive Date: 20240430
  Receipt Date: 20240612
  Transmission Date: 20240716
  Serious: Yes (Hospitalization)
  Sender: FDA-Public Use
  Company Number: BR-TAKEDA-2024TUS034922

PATIENT
  Age: 78 Year
  Sex: Male

DRUGS (2)
  1. VEDOLIZUMAB [Suspect]
     Active Substance: VEDOLIZUMAB
     Indication: Colitis ulcerative
     Dosage: 300 MILLIGRAM
     Route: 042
  2. VEDOLIZUMAB [Suspect]
     Active Substance: VEDOLIZUMAB
     Dosage: 300 MILLIGRAM, Q4WEEKS
     Route: 042

REACTIONS (4)
  - Adverse event [Unknown]
  - Malaise [Recovered/Resolved]
  - Asthenia [Recovered/Resolved]
  - Frequent bowel movements [Recovered/Resolved]

NARRATIVE: CASE EVENT DATE: 20240416
